FAERS Safety Report 11985027 (Version 1)
Quarter: 2016Q1

REPORT INFORMATION
  Report Type: Report from Study
  Country: VE (occurrence: VE)
  Receive Date: 20160201
  Receipt Date: 20160201
  Transmission Date: 20160526
  Serious: Yes (Hospitalization)
  Sender: FDA-Public Use
  Company Number: PHHY2016VE013184

PATIENT
  Age: 57 Year
  Sex: Female

DRUGS (1)
  1. AFINITOR [Suspect]
     Active Substance: EVEROLIMUS
     Indication: BREAST CANCER
     Dosage: UNK UNK, QD
     Route: 048
     Dates: start: 201512, end: 20151223

REACTIONS (8)
  - Back disorder [Unknown]
  - Dysphagia [Unknown]
  - Malaise [Unknown]
  - Mouth ulceration [Unknown]
  - Loss of consciousness [Recovered/Resolved]
  - Depressed mood [Unknown]
  - Feeding disorder [Unknown]
  - Stomatitis [Unknown]

NARRATIVE: CASE EVENT DATE: 201512
